FAERS Safety Report 18124279 (Version 16)
Quarter: 2023Q1

REPORT INFORMATION
  Report Type: Report from Study
  Country: CA (occurrence: CA)
  Receive Date: 20200807
  Receipt Date: 20230110
  Transmission Date: 20230417
  Serious: Yes (Death, Hospitalization, Other)
  Sender: FDA-Public Use
  Company Number: CA-HLS-202000904

PATIENT
  Age: 46 Year
  Sex: Female

DRUGS (29)
  1. CLOZARIL [Suspect]
     Active Substance: CLOZAPINE
     Indication: Schizoaffective disorder
     Route: 048
     Dates: start: 20050530, end: 20221225
  2. CLOZARIL [Suspect]
     Active Substance: CLOZAPINE
     Indication: Schizophrenia
     Route: 048
     Dates: start: 20050530, end: 20221225
  3. CLOZARIL [Suspect]
     Active Substance: CLOZAPINE
     Indication: Schizoaffective disorder
     Dosage: 350 MG AT BEDTIME??DRUG START DATE: 30-MAY-2022
     Route: 048
  4. CLOZARIL [Suspect]
     Active Substance: CLOZAPINE
     Indication: Schizophrenia
     Dosage: 350 MG AT BEDTIME??DRUG START DATE: 30-MAY-2022
     Route: 048
  5. CLOZARIL [Suspect]
     Active Substance: CLOZAPINE
     Indication: Schizoaffective disorder
     Dosage: 375 MG
     Route: 048
     Dates: start: 20050530
  6. CLOZARIL [Suspect]
     Active Substance: CLOZAPINE
     Indication: Schizophrenia
     Dosage: 375 MG
     Route: 048
     Dates: start: 20050530
  7. CLOZARIL [Suspect]
     Active Substance: CLOZAPINE
     Indication: Schizoaffective disorder
     Dosage: QHS
     Route: 048
     Dates: start: 20050530
  8. CLOZARIL [Suspect]
     Active Substance: CLOZAPINE
     Indication: Schizophrenia
     Dosage: QHS
     Route: 048
     Dates: start: 20050530
  9. RIBOCICLIB [Concomitant]
     Active Substance: RIBOCICLIB
     Indication: Breast cancer stage IV
     Dosage: 400 MG X 21 D, AND THEN 600 MG FOR 21 DAYS AND THEN 7 DAYS OFF.
     Route: 048
  10. Ventolin 100 mcg inhaler [Concomitant]
     Dosage: 2 PUFF INH
     Route: 065
  11. TYLENOL [Concomitant]
     Active Substance: ACETAMINOPHEN
     Dosage: PRN
     Route: 048
  12. SPIRIVA [Concomitant]
     Active Substance: TIOTROPIUM BROMIDE MONOHYDRATE
     Route: 065
  13. EPIVAL [Concomitant]
     Active Substance: DIVALPROEX SODIUM
     Dosage: QHS
     Route: 048
  14. Colyte, Peglyte [Concomitant]
     Dosage: QHS
     Route: 048
  15. ZINC GLUCONATE [Concomitant]
     Active Substance: ZINC GLUCONATE
     Dosage: QHS
     Route: 048
  16. SELENIUM [Concomitant]
     Active Substance: SELENIUM
     Route: 048
  17. FUROSEMIDE [Concomitant]
     Active Substance: FUROSEMIDE
     Dosage: QAM
     Route: 048
  18. FEMARA [Concomitant]
     Active Substance: LETROZOLE
     Dosage: QAM
     Route: 048
  19. CALTRATE SELECT [Concomitant]
     Route: 065
  20. IMODIUM [Concomitant]
     Active Substance: LOPERAMIDE HYDROCHLORIDE
     Dosage: 4 MG ONCE PRN MDD 16 MG (8 TABS/DAY)
     Route: 048
  21. NICORETTE [Concomitant]
     Active Substance: NICOTINE
     Dosage: INH AS DIRECTED PRN
     Route: 065
  22. Habitrol 21 mg, Nicoderm [Concomitant]
     Dosage: 1 PATCH TRANSDERM Q AM
     Route: 065
  23. PROCHLORPERAZINE [Concomitant]
     Active Substance: PROCHLORPERAZINE
     Dosage: PRN AS DIRECTED
     Route: 048
  24. Kisgali [Concomitant]
     Route: 048
  25. INDERAL [Concomitant]
     Active Substance: PROPRANOLOL HYDROCHLORIDE
     Dosage: PRN
     Route: 048
  26. Sulcrate Plus [Concomitant]
     Dosage: AS DIRECTED
     Route: 048
  27. ATIVAN [Concomitant]
     Active Substance: LORAZEPAM
     Dosage: AS DIRECTED PRM MDD 2 TABS
     Route: 060
  28. DECADRON [Concomitant]
     Active Substance: DEXAMETHASONE
     Route: 048
  29. ZOMETA [Concomitant]
     Active Substance: ZOLEDRONIC ACID
     Dosage: AS DIRECTED
     Route: 042

REACTIONS (8)
  - Breast cancer stage IV [Fatal]
  - Chronic obstructive pulmonary disease [Unknown]
  - Terminal state [Unknown]
  - Metastatic neoplasm [Fatal]
  - Off label use [Unknown]
  - Pneumonia [Unknown]
  - Product blister packaging issue [Unknown]
  - Dysphagia [Unknown]

NARRATIVE: CASE EVENT DATE: 20050530
